FAERS Safety Report 4273866-6 (Version None)
Quarter: 2004Q1

REPORT INFORMATION
  Report Type: 
  Country: None (occurrence: None)
  Receive Date: 20040115
  Receipt Date: 20031230
  Transmission Date: 20041129
  Serious: Yes (Other)
  Sender: FDA-Public Use
  Company Number: USA031255624

PATIENT
  Age: 75 Year
  Sex: Female

DRUGS (3)
  1. EVISTA [Suspect]
     Dates: start: 20000101
  2. PREMARIN [Concomitant]
  3. PROVERA [Concomitant]

REACTIONS (1)
  - ENDOMETRIAL CANCER [None]
